FAERS Safety Report 10392582 (Version 1)
Quarter: 2014Q3

REPORT INFORMATION
  Report Type: Spontaneous
  Country: US (occurrence: US)
  Receive Date: 20140819
  Receipt Date: 20140819
  Transmission Date: 20150326
  Serious: Yes (Other)
  Sender: FDA-Public Use
  Company Number: US-PFIZER INC-2014227183

PATIENT
  Age: 46 Year
  Sex: Female
  Weight: 142.86 kg

DRUGS (2)
  1. NEURONTIN [Suspect]
     Active Substance: GABAPENTIN
     Indication: NEUROPATHY PERIPHERAL
     Dosage: 800 MG, 4X/DAY
  2. NEURONTIN [Suspect]
     Active Substance: GABAPENTIN
     Indication: NEURALGIA
     Dosage: UNK
     Dates: start: 2010

REACTIONS (4)
  - Intentional product misuse [Unknown]
  - Arthropathy [Unknown]
  - Blood pressure increased [Unknown]
  - Amnesia [Unknown]

NARRATIVE: CASE EVENT DATE: 2014
